FAERS Safety Report 18461294 (Version 1)
Quarter: 2020Q4

REPORT INFORMATION
  Report Type: Spontaneous
  Country: GB (occurrence: GB)
  Receive Date: 20201104
  Receipt Date: 20201104
  Transmission Date: 20210114
  Serious: Yes (Other)
  Sender: FDA-Public Use
  Company Number: GB-ACCORD-207355

PATIENT
  Age: 49 Year
  Sex: Female
  Weight: 72 kg

DRUGS (19)
  1. DESOGESTREL [Concomitant]
     Active Substance: DESOGESTREL
     Dates: start: 20200504
  2. RAMIPRIL. [Suspect]
     Active Substance: RAMIPRIL
     Indication: PRODUCT USED FOR UNKNOWN INDICATION
     Dates: start: 20201014
  3. NAPROXEN. [Concomitant]
     Active Substance: NAPROXEN
     Dosage: AFTER FOOD
     Dates: start: 20200727, end: 20200810
  4. FOSTAIR [Concomitant]
     Active Substance: BECLOMETHASONE\FORMOTEROL
     Dosage: PUFFS
     Dates: start: 20200522
  5. LANSOPRAZOLE. [Concomitant]
     Active Substance: LANSOPRAZOLE
     Dates: start: 20201008
  6. PREDNISOLONE. [Concomitant]
     Active Substance: PREDNISOLONE
     Dosage: FOR 5 DAYS
     Dates: start: 20200917, end: 20200922
  7. MIRABEGRON [Concomitant]
     Active Substance: MIRABEGRON
     Dates: start: 20200927
  8. HYPROMELLOSE/HYPROMELLOSE PHTHALATE [Concomitant]
     Dosage: INTO THE AFFECTED EYE(S)
     Route: 031
     Dates: start: 20200622
  9. VALPROIC ACID. [Concomitant]
     Active Substance: VALPROIC ACID
     Dates: start: 20190919
  10. CARBOMER [Concomitant]
     Active Substance: CARBOMER
     Dosage: 3-4 TIMES A DAY
     Dates: start: 20200622
  11. DICLOFENAC [Concomitant]
     Active Substance: DICLOFENAC
     Dosage: APPLY
     Dates: start: 20200907, end: 20201007
  12. ZAPAIN [Concomitant]
     Active Substance: ACETAMINOPHEN\CODEINE PHOSPHATE
     Dosage: TAKE 1 OR 2, 4 TIMES A DAY
     Dates: start: 20200622
  13. MEBEVERINE [Concomitant]
     Active Substance: MEBEVERINE
     Dates: start: 20200622
  14. INDAPAMIDE. [Concomitant]
     Active Substance: INDAPAMIDE
     Dosage: EACH MORNING
     Dates: start: 20200424
  15. SUKKARTO [Concomitant]
     Active Substance: METFORMIN HYDROCHLORIDE
     Dates: start: 20200522
  16. SUMATRIPTAN. [Concomitant]
     Active Substance: SUMATRIPTAN
     Indication: MIGRAINE
     Dosage: AS DIRECTED AT ONSET OF MIGRAINE
     Dates: start: 20200622
  17. HYDROCORTISONE. [Concomitant]
     Active Substance: HYDROCORTISONE
     Dosage: APPLY
     Dates: start: 20200819, end: 20200821
  18. MIRTAZAPINE. [Concomitant]
     Active Substance: MIRTAZAPINE
     Dosage: USE AS DIRECTED
     Dates: start: 20200522
  19. SOLIFENACIN/SOLIFENACIN SUCCINATE [Concomitant]
     Active Substance: SOLIFENACIN SUCCINATE
     Dates: start: 20200622, end: 20201014

REACTIONS (2)
  - Asthma [Unknown]
  - Dyspnoea [Unknown]

NARRATIVE: CASE EVENT DATE: 20201016
